FAERS Safety Report 8932517 (Version 1)
Quarter: 2012Q4

REPORT INFORMATION
  Report Type: Spontaneous
  Country: IN (occurrence: None)
  Receive Date: 20121120
  Receipt Date: 20121120
  Transmission Date: 20130627
  Serious: Yes (Death)
  Sender: FDA-Public Use
  Company Number: EUS-2012-00905

PATIENT
  Age: 21 Year
  Sex: Female

DRUGS (3)
  1. ASPARAGINASE [Suspect]
     Indication: ACUTE LYMPHOCYTIC LEUKAEMIA
  2. VINCRISTINE [Concomitant]
  3. DAUNORUBICIN (DAUNORUBICIN) (UNKNOWN) (DAUNORUBICIN) [Concomitant]

REACTIONS (2)
  - Convulsion [None]
  - Cerebral venous thrombosis [None]
